FAERS Safety Report 13987646 (Version 1)
Quarter: 2017Q3

REPORT INFORMATION
  Report Type: Spontaneous
  Country: US (occurrence: US)
  Receive Date: 20170919
  Receipt Date: 20170919
  Transmission Date: 20171128
  Serious: No
  Sender: FDA-Public Use
  Company Number: US-BAYER-2017-179063

PATIENT
  Sex: Female

DRUGS (3)
  1. BISACOLAX [Concomitant]
     Indication: COLONOSCOPY
  2. MIRALAX [Suspect]
     Active Substance: POLYETHYLENE GLYCOL 3350
     Indication: CONSTIPATION
     Route: 065
  3. MIRALAX [Suspect]
     Active Substance: POLYETHYLENE GLYCOL 3350
     Indication: GASTROINTESTINAL DISORDER

REACTIONS (6)
  - Mass [Unknown]
  - Pruritus [Unknown]
  - Urticaria [Unknown]
  - Inappropriate prescribing [Unknown]
  - Product use in unapproved indication [Unknown]
  - Rash generalised [Unknown]
